FAERS Safety Report 14315264 (Version 2)
Quarter: 2018Q1

REPORT INFORMATION
  Report Type: Spontaneous
  Country: US (occurrence: US)
  Receive Date: 20171221
  Receipt Date: 20180111
  Transmission Date: 20180509
  Serious: Yes (Hospitalization, Other)
  Sender: FDA-Public Use
  Company Number: US-SAOL THERAPEUTICS-0701219292

PATIENT
  Age: 6 Year
  Sex: Male
  Weight: 74.38 kg

DRUGS (25)
  1. LIORESAL [Suspect]
     Active Substance: BACLOFEN
     Dosage: 2000 ?G, \DAY
     Dates: start: 20151229
  2. HUMALOG [Concomitant]
     Active Substance: INSULIN LISPRO
  3. LIORESAL [Suspect]
     Active Substance: BACLOFEN
     Indication: MUSCLE SPASTICITY
     Dosage: 199.9 ?G, \DAY
     Route: 037
     Dates: start: 201506
  4. LIORESAL [Suspect]
     Active Substance: BACLOFEN
     Dosage: 2300 ?G, \DAY
     Route: 037
     Dates: end: 20151229
  5. VITAMIN D [Concomitant]
     Active Substance: CHOLECALCIFEROL
     Dosage: 2000 UNK, 1X/DAY
     Dates: start: 20160119
  6. LANTUS [Concomitant]
     Active Substance: INSULIN GLARGINE
  7. IBUPROFEN. [Concomitant]
     Active Substance: IBUPROFEN
     Indication: DISCOMFORT
  8. CLONIDINE PATCH [Concomitant]
     Active Substance: CLONIDINE
     Dosage: 0.1 MG, Q WEEK
     Dates: start: 20150203
  9. VALIUM [Concomitant]
     Active Substance: DIAZEPAM
     Dosage: UNK
     Dates: start: 20150203, end: 20151023
  10. BACLOFEN. [Concomitant]
     Active Substance: BACLOFEN
     Dosage: UNK UNK, 3X/DAY
     Route: 048
     Dates: end: 20150701
  11. MAGNESIUM [Concomitant]
     Active Substance: MAGNESIUM
     Dosage: 750 MG, 1X/DAY
     Dates: start: 20150619
  12. ALBUTEROL NEBULIZER [Concomitant]
     Active Substance: ALBUTEROL
     Dosage: 1 DOSAGE UNITS, 2X/DAY
     Dates: start: 20150203
  13. IBUPROFEN. [Concomitant]
     Active Substance: IBUPROFEN
     Indication: PYREXIA
     Dosage: 400 MG, AS NEEDED
  14. ALBUTEROL. [Concomitant]
     Active Substance: ALBUTEROL
     Dosage: UNK, AS NEEDED
  15. LIORESAL [Suspect]
     Active Substance: BACLOFEN
     Dosage: 2000.2 ?G, \DAY
     Route: 037
     Dates: start: 201506
  16. LIORESAL [Suspect]
     Active Substance: BACLOFEN
     Dosage: 20000 ?G, \DAY
     Route: 037
     Dates: start: 20151229
  17. VALIUM [Concomitant]
     Active Substance: DIAZEPAM
     Dosage: 2 MG, 3X/DAY
     Dates: start: 20151023
  18. ACETAMINOPHEN. [Concomitant]
     Active Substance: ACETAMINOPHEN
     Dosage: 650 MG, AS NEEDED
  19. GLUCAGON KIT [Concomitant]
     Indication: HYPOGLYCAEMIA
     Dosage: UNK, AS NEEDED
  20. VITAMIN C [Concomitant]
     Active Substance: ASCORBIC ACID
     Dosage: 250 MG, 2X/DAY
     Dates: start: 20150203
  21. VITAMIN D3 [Concomitant]
     Active Substance: CHOLECALCIFEROL
     Dosage: 1 DOSAGE UNITS, 3X/WEEK
     Dates: start: 20150219
  22. VITAMIN D [Concomitant]
     Active Substance: CHOLECALCIFEROL
     Dosage: UNK
     Dates: start: 20160119
  23. BACLOFEN. [Concomitant]
     Active Substance: BACLOFEN
     Indication: DEVICE FAILURE
     Dosage: 50 MG, AS NEEDED
  24. AMLODIPINE [Concomitant]
     Active Substance: AMLODIPINE BESYLATE
     Dosage: 10 MG, Q AM
     Dates: start: 20130203, end: 20170905
  25. MIRALAX [Concomitant]
     Active Substance: POLYETHYLENE GLYCOL 3350
     Dosage: 10 ML, 1X/DAY
     Dates: start: 20150528

REACTIONS (19)
  - Diarrhoea [Unknown]
  - Klebsiella infection [Unknown]
  - Tracheostomy malfunction [Unknown]
  - Muscle spasticity [Unknown]
  - Clostridium difficile infection [Unknown]
  - Clostridium bacteraemia [Unknown]
  - Orthopaedic procedure [Unknown]
  - Seizure [Unknown]
  - Blood magnesium decreased [Unknown]
  - Urinary retention [Unknown]
  - Proteus infection [Unknown]
  - Device infusion issue [Unknown]
  - Radiculotomy [Unknown]
  - Sputum purulent [Unknown]
  - Urosepsis [Unknown]
  - Staphylococcal infection [Unknown]
  - Therapy non-responder [Unknown]
  - Apnoea [Unknown]
  - Hypoxia [Unknown]

NARRATIVE: CASE EVENT DATE: 20060130
